FAERS Safety Report 15346836 (Version 1)
Quarter: 2018Q3

REPORT INFORMATION
  Report Type: Spontaneous
  Country: DE (occurrence: DE)
  Receive Date: 20180904
  Receipt Date: 20180904
  Transmission Date: 20181010
  Serious: Yes (Death, Life-Threatening, Hospitalization, Other)
  Sender: FDA-Public Use
  Company Number: PHHY2018DE088794

PATIENT
  Age: 64 Year
  Sex: Female
  Weight: 60 kg

DRUGS (5)
  1. ACTILYSE [Suspect]
     Active Substance: ALTEPLASE
     Indication: PRODUCT USED FOR UNKNOWN INDICATION
     Dosage: 23 MG, QD
     Route: 013
  2. MTX [Concomitant]
     Active Substance: METHOTREXATE SODIUM
     Indication: RHEUMATIC DISORDER
     Dosage: 7.5 MG, QD
     Route: 048
  3. DECORTIN H [Concomitant]
     Active Substance: PREDNISOLONE
     Indication: RHEUMATIC DISORDER
     Dosage: 5 MG, QD
     Route: 048
  4. HEPARIN SODIUM. [Suspect]
     Active Substance: HEPARIN SODIUM
     Indication: DRUG THERAPY
     Dosage: APPROXIMATELY 24000 IU
     Route: 013
  5. ACTILYSE [Suspect]
     Active Substance: ALTEPLASE
     Dosage: 17 MG, QD (10 MG BOLUS ADMINISTRATION, THAN 1 MG/H, TOTAL DOSAGE 17MG)
     Route: 013
     Dates: start: 20180721, end: 20180722

REACTIONS (3)
  - Ischaemic stroke [Fatal]
  - Hemiparesis [Unknown]
  - Cerebral haemorrhage [Unknown]

NARRATIVE: CASE EVENT DATE: 20180721
